FAERS Safety Report 8119827-8 (Version None)
Quarter: 2012Q1

REPORT INFORMATION
  Report Type: 
  Country: None (occurrence: None)
  Receive Date: 20120207
  Receipt Date: 20120123
  Transmission Date: 20120608
  Serious: Yes (Other)
  Sender: FDA-Public Use
  Company Number: KR-WATSON-2012-01792

PATIENT
  Age: 45 Year
  Sex: Female

DRUGS (1)
  1. METRONIDAZOLE [Suspect]
     Indication: CHOLECYSTITIS
     Dosage: X30 DAYS FOR TOTAL OF 35 GRAMS
     Route: 065

REACTIONS (1)
  - NEUROTOXICITY [None]
